FAERS Safety Report 24138029 (Version 4)
Quarter: 2024Q4

REPORT INFORMATION
  Report Type: Report from Study
  Country: US (occurrence: US)
  Receive Date: 20240725
  Receipt Date: 20241205
  Transmission Date: 20250114
  Serious: Yes (Other)
  Sender: NOVARTIS
  Company Number: US-002147023-NVSC2024US151479

PATIENT
  Sex: Female

DRUGS (1)
  1. KESIMPTA [Suspect]
     Active Substance: OFATUMUMAB
     Indication: Product used for unknown indication
     Dosage: UNK
     Route: 065

REACTIONS (10)
  - Multiple sclerosis [Unknown]
  - Loss of consciousness [Unknown]
  - Illness [Unknown]
  - Nasopharyngitis [Unknown]
  - Tremor [Unknown]
  - Chills [Unknown]
  - Nausea [Unknown]
  - Eye pain [Unknown]
  - Pyrexia [Unknown]
  - Malaise [Unknown]
